FAERS Safety Report 7197392-X (Version None)
Quarter: 2010Q4

REPORT INFORMATION
  Report Type: 
  Country: None (occurrence: None)
  Receive Date: 20101227
  Receipt Date: 20101214
  Transmission Date: 20110411
  Serious: Yes (Other)
  Sender: FDA-Public Use
  Company Number: CA-JNJFOC-20101205924

PATIENT
  Age: 72 Year
  Sex: Male
  Weight: 73.48 kg

DRUGS (8)
  1. IMODIUM A-D [Suspect]
     Route: 048
  2. IMODIUM A-D [Suspect]
     Indication: DIARRHOEA
     Route: 048
  3. IMODIUM ADVANCED [Suspect]
     Route: 048
  4. IMODIUM ADVANCED [Suspect]
     Indication: DIARRHOEA
     Route: 048
  5. CALCIUM [Suspect]
     Indication: ILL-DEFINED DISORDER
     Dosage: SINCE 3 MONTHS
     Route: 065
  6. LOMOTIL [Concomitant]
     Route: 065
  7. BEANO [Concomitant]
     Route: 065
  8. SULFUR [Concomitant]

REACTIONS (6)
  - CHEST DISCOMFORT [None]
  - DIZZINESS [None]
  - DRUG INEFFECTIVE [None]
  - HAEMOGLOBIN DECREASED [None]
  - HEART RATE INCREASED [None]
  - OVERDOSE [None]
